FAERS Safety Report 7620943-5 (Version None)
Quarter: 2011Q3

REPORT INFORMATION
  Report Type: 
  Country: None (occurrence: None)
  Receive Date: 20110719
  Receipt Date: 20110714
  Transmission Date: 20111222
  Serious: Yes (Other)
  Sender: FDA-Public Use
  Company Number: GB-MERCK-1005GBR00097

PATIENT
  Sex: Female

DRUGS (4)
  1. LEVOTHYROXINE SODIUM [Concomitant]
     Route: 065
  2. CALCIUM CARBONATE [Concomitant]
     Route: 065
  3. FOSAMAX [Suspect]
     Route: 048
  4. ATORVASTATIN [Concomitant]
     Route: 065

REACTIONS (1)
  - PHARYNGEAL CANCER STAGE UNSPECIFIED [None]
